FAERS Safety Report 4461969-2 (Version None)
Quarter: 2004Q3

REPORT INFORMATION
  Report Type: 
  Country: None (occurrence: None)
  Receive Date: 20040927
  Receipt Date: 20040927
  Transmission Date: 20050211
  Serious: Yes (Other)
  Sender: FDA-Public Use
  Company Number: None

PATIENT
  Age: 54 Year
  Sex: Female
  Weight: 58.9676 kg

DRUGS (1)
  1. NORVASC [Suspect]
     Indication: HYPERTENSION
     Dosage: 7.5 MG OD ORAL
     Route: 048
     Dates: start: 20030808, end: 20040405

REACTIONS (2)
  - CONSTIPATION [None]
  - SUICIDAL IDEATION [None]
